FAERS Safety Report 7801360-1 (Version None)
Quarter: 2011Q4

REPORT INFORMATION
  Report Type: 
  Country: None (occurrence: None)
  Receive Date: 20111006
  Receipt Date: 20111006
  Transmission Date: 20120403
  Serious: Yes (Hospitalization)
  Sender: FDA-Public Use
  Company Number: None

PATIENT
  Age: 88 Year
  Sex: Female
  Weight: 64.8 kg

DRUGS (3)
  1. LOVENOX [Suspect]
     Dosage: RECENT
  2. ASPIRIN [Suspect]
     Dosage: 81MG DAILY PO
     Route: 048
  3. WARFARIN SODIUM [Suspect]
     Indication: ATRIAL FIBRILLATION
     Dosage: 5MG DAILY PO RECENT
     Route: 048

REACTIONS (5)
  - DUODENAL ULCER HAEMORRHAGE [None]
  - HAEMOGLOBIN DECREASED [None]
  - STRESS CARDIOMYOPATHY [None]
  - HAEMATOCRIT DECREASED [None]
  - CARDIAC FAILURE CONGESTIVE [None]
